FAERS Safety Report 23550587 (Version 3)
Quarter: 2024Q1

REPORT INFORMATION
  Report Type: Spontaneous
  Country: US (occurrence: US)
  Receive Date: 20240221
  Receipt Date: 20240308
  Transmission Date: 20240409
  Serious: Yes (Hospitalization)
  Sender: FDA-Public Use
  Company Number: US-KARYOPHARM-2023KPT002249

PATIENT

DRUGS (17)
  1. XPOVIO [Suspect]
     Active Substance: SELINEXOR
     Indication: Plasma cell myeloma
     Dosage: 80 MG, WEEKLY
     Route: 048
     Dates: start: 20231127, end: 202401
  2. XPOVIO [Suspect]
     Active Substance: SELINEXOR
     Dosage: 60 MG, WEEKLY
     Route: 048
     Dates: start: 202401, end: 202402
  3. ACYCLOVIR [Concomitant]
     Active Substance: ACYCLOVIR
  4. CARFILZOMIB [Concomitant]
     Active Substance: CARFILZOMIB
  5. DEXAMETHASONE [Concomitant]
     Active Substance: DEXAMETHASONE
  6. ELIQUIS [Concomitant]
     Active Substance: APIXABAN
  7. FLONASE [Concomitant]
     Active Substance: FLUTICASONE PROPIONATE
  8. LACTULOSE [Concomitant]
     Active Substance: LACTULOSE
  9. METOPROLOL TARTRATE [Concomitant]
     Active Substance: METOPROLOL TARTRATE
  10. ONDANSETRON [Concomitant]
     Active Substance: ONDANSETRON
  11. PANTOPRAZOLE SODIUM [Concomitant]
     Active Substance: PANTOPRAZOLE SODIUM
  12. PERCOCET [Concomitant]
     Active Substance: ACETAMINOPHEN\OXYCODONE HYDROCHLORIDE
  13. ROSUVASTATIN [Concomitant]
     Active Substance: ROSUVASTATIN
  14. ZOLOFT [Concomitant]
     Active Substance: SERTRALINE HYDROCHLORIDE
  15. OLANZAPINE [Concomitant]
     Active Substance: OLANZAPINE
  16. PROCHLORPERAZINE [Concomitant]
     Active Substance: PROCHLORPERAZINE
  17. DIPHENHYDRAMINE [Concomitant]
     Active Substance: DIPHENHYDRAMINE

REACTIONS (5)
  - Full blood count decreased [Unknown]
  - Renal impairment [Unknown]
  - Plasma cell myeloma [Unknown]
  - Nausea [Not Recovered/Not Resolved]
  - Vomiting [Not Recovered/Not Resolved]

NARRATIVE: CASE EVENT DATE: 20230101
